FAERS Safety Report 5409089-4 (Version None)
Quarter: 2007Q3

REPORT INFORMATION
  Report Type: 
  Country: None (occurrence: None)
  Receive Date: 20070808
  Receipt Date: 20070730
  Transmission Date: 20080115
  Serious: Yes (Life-Threatening, Hospitalization)
  Sender: FDA-Public Use
  Company Number: ES-MERCK-0708USA00353

PATIENT
  Age: 83 Year
  Sex: Female

DRUGS (9)
  1. MODURETIC 5-50 [Suspect]
     Route: 048
  2. NEUPRO [Suspect]
     Indication: PARKINSON'S DISEASE
     Route: 065
     Dates: start: 20070514, end: 20070520
  3. TORSEMIDE [Suspect]
     Indication: ESSENTIAL HYPERTENSION
     Route: 048
     Dates: start: 20070516, end: 20070520
  4. CEFUROXIME [Suspect]
     Indication: PYREXIA
     Route: 065
     Dates: start: 20070519, end: 20070520
  5. RISPERDAL [Suspect]
     Indication: SENILE DEMENTIA
     Route: 048
     Dates: end: 20070514
  6. OMEPRAZOLE [Concomitant]
     Route: 048
  7. ADIRO [Concomitant]
     Route: 048
  8. LOFTON [Concomitant]
     Route: 048
  9. PROMETAX [Concomitant]
     Indication: SENILE DEMENTIA
     Route: 048

REACTIONS (3)
  - ANTIDIURETIC HORMONE ABNORMALITY [None]
  - CONSTIPATION [None]
  - HYPONATRAEMIA [None]
